FAERS Safety Report 7965793-5 (Version None)
Quarter: 2011Q4

REPORT INFORMATION
  Report Type: 
  Country: None (occurrence: None)
  Receive Date: 20111208
  Receipt Date: 20111130
  Transmission Date: 20120403
  Serious: Yes (Hospitalization)
  Sender: FDA-Public Use
  Company Number: BR-MEDIMMUNE-MEDI-0014044

PATIENT

DRUGS (1)
  1. SYNAGIS [Suspect]

REACTIONS (5)
  - NASOPHARYNGITIS [None]
  - PYREXIA [None]
  - FATIGUE [None]
  - BRONCHIOLITIS [None]
  - WHEEZING [None]
